FAERS Safety Report 6919246-3 (Version None)
Quarter: 2010Q3

REPORT INFORMATION
  Report Type: 
  Country: None (occurrence: None)
  Receive Date: 20100811
  Receipt Date: 20100728
  Transmission Date: 20110219
  Serious: Yes (Other)
  Sender: FDA-Public Use
  Company Number: US-CELGENEUS-163-21880-10050304

PATIENT
  Sex: Male

DRUGS (2)
  1. REVLIMID [Suspect]
     Indication: MYELODYSPLASTIC SYNDROME
     Route: 048
     Dates: start: 20080110
  2. REVLIMID [Suspect]
     Route: 048
     Dates: start: 20100101

REACTIONS (7)
  - COLITIS [None]
  - DIARRHOEA [None]
  - DYSPNOEA [None]
  - PLATELET COUNT DECREASED [None]
  - PNEUMONIA [None]
  - SKIN DISCOLOURATION [None]
  - VASCULITIS [None]
